FAERS Safety Report 5718073-2 (Version None)
Quarter: 2008Q2

REPORT INFORMATION
  Report Type: 
  Country: None (occurrence: None)
  Receive Date: 20080425
  Receipt Date: 20080415
  Transmission Date: 20081010
  Serious: Yes (Other)
  Sender: FDA-Public Use
  Company Number: JP-MERCK-0804USA00514

PATIENT
  Age: 82 Year
  Sex: Female

DRUGS (8)
  1. FOSAMAX [Suspect]
     Indication: OSTEOPOROSIS
     Route: 048
     Dates: start: 20080130, end: 20080201
  2. BUP-4 [Suspect]
     Indication: NEUROGENIC BLADDER
     Route: 048
  3. BROTIZOLAM [Suspect]
     Indication: INSOMNIA
     Route: 048
  4. NU-LOTAN [Suspect]
     Indication: HYPERTENSION
     Route: 048
  5. HUSCODE [Suspect]
     Indication: COUGH
     Route: 048
     Dates: start: 20050606
  6. AMBROXOL HYDROCHLORIDE [Suspect]
     Indication: ASTHMA
     Route: 048
  7. THEOPHYLLINE [Suspect]
     Indication: ASTHMA
     Route: 048
  8. CHINESE LICORICE [Suspect]
     Indication: ARTHRALGIA
     Route: 048

REACTIONS (2)
  - ABASIA [None]
  - DIZZINESS [None]
